FAERS Safety Report 25217044 (Version 6)
Quarter: 2025Q3

REPORT INFORMATION
  Report Type: Report from Study
  Country: US (occurrence: US)
  Receive Date: 20250419
  Receipt Date: 20250708
  Transmission Date: 20251020
  Serious: Yes (Hospitalization, Other)
  Sender: TAKEDA
  Company Number: US-TAKEDA-2025TUS035812

PATIENT
  Age: 83 Year
  Sex: Female

DRUGS (5)
  1. TEDUGLUTIDE [Suspect]
     Active Substance: TEDUGLUTIDE
     Indication: Short-bowel syndrome
     Dosage: UNK UNK, QD
  2. TEDUGLUTIDE [Suspect]
     Active Substance: TEDUGLUTIDE
  3. TEDUGLUTIDE [Suspect]
     Active Substance: TEDUGLUTIDE
     Dosage: 0.2 MILLILITER, QD
  4. TEDUGLUTIDE [Suspect]
     Active Substance: TEDUGLUTIDE
  5. TEDUGLUTIDE [Suspect]
     Active Substance: TEDUGLUTIDE

REACTIONS (28)
  - Peripheral venous disease [Unknown]
  - Aortic stenosis [Unknown]
  - Blood pressure increased [Unknown]
  - Swelling [Unknown]
  - Product physical issue [Unknown]
  - Needle issue [Unknown]
  - Asthenia [Unknown]
  - Fungal foot infection [Unknown]
  - Syringe issue [Unknown]
  - Circumstance or information capable of leading to medication error [Unknown]
  - Frustration tolerance decreased [Unknown]
  - Discouragement [Unknown]
  - Fatigue [Unknown]
  - Renal disorder [Unknown]
  - Physical product label issue [Unknown]
  - Inappropriate schedule of product administration [Unknown]
  - Constipation [Unknown]
  - Product dose omission issue [Unknown]
  - Weight decreased [Unknown]
  - Diarrhoea [Unknown]
  - Product distribution issue [Unknown]
  - Dyspepsia [Unknown]
  - Chest discomfort [Unknown]
  - Contusion [Unknown]
  - Peripheral swelling [Unknown]
  - Device issue [Unknown]
  - Product container issue [Unknown]
  - Nausea [Unknown]

NARRATIVE: CASE EVENT DATE: 20250321
